FAERS Safety Report 15075099 (Version 1)
Quarter: 2018Q2

REPORT INFORMATION
  Report Type: Spontaneous
  Country: US (occurrence: US)
  Receive Date: 20180627
  Receipt Date: 20180627
  Transmission Date: 20180711
  Serious: Yes (Other)
  Sender: FDA-Public Use
  Company Number: US-SAOL THERAPEUTICS-2017SAO03420

PATIENT
  Sex: Male
  Weight: 37.7 kg

DRUGS (1)
  1. BACLOFEN. [Suspect]
     Active Substance: BACLOFEN
     Dosage: 900.3 ?G, \DAY
     Route: 037
     Dates: start: 20171004

REACTIONS (2)
  - Implant site erosion [Recovered/Resolved]
  - Decubitus ulcer [Unknown]
